FAERS Safety Report 5451119-8 (Version None)
Quarter: 2007Q3

REPORT INFORMATION
  Report Type: 
  Country: None (occurrence: None)
  Receive Date: 20070913
  Receipt Date: 20070912
  Transmission Date: 20080115
  Serious: Yes (Hospitalization)
  Sender: FDA-Public Use
  Company Number: US-BRISTOL-MYERS SQUIBB COMPANY-13892252

PATIENT
  Age: 50 Year
  Sex: Female

DRUGS (4)
  1. ABATACEPT [Suspect]
     Indication: RHEUMATOID ARTHRITIS
     Route: 042
     Dates: start: 20060413
  2. DICLOFENAC [Concomitant]
     Indication: RHEUMATOID ARTHRITIS
     Dosage: RESTARTED ON 27-JUN-2007 WITH 75 MG Q.D. P.O.
     Route: 048
     Dates: start: 20060224, end: 20070626
  3. FOLIC ACID [Concomitant]
     Indication: RHEUMATOID ARTHRITIS
     Route: 048
     Dates: start: 20060413
  4. METHOTREXATE [Concomitant]
     Indication: RHEUMATOID ARTHRITIS
     Dosage: 13-APR-06 TO 10-05-06 7.5MG, 11-05-06 TO 07-06-06 15MG, 08-06-07 CONT 20MG
     Route: 048
     Dates: start: 20060413

REACTIONS (1)
  - APPENDICEAL ABSCESS [None]
